FAERS Safety Report 18839935 (Version 3)
Quarter: 2021Q1

REPORT INFORMATION
  Report Type: Spontaneous
  Country: BY (occurrence: BY)
  Receive Date: 20210203
  Receipt Date: 20210318
  Transmission Date: 20210419
  Serious: Yes (Congenital Anomaly, Other)
  Sender: FDA-Public Use
  Company Number: NVSC2021BY023014

PATIENT
  Sex: Female
  Weight: 3.05 kg

DRUGS (2)
  1. AMOXICILLIN. [Suspect]
     Active Substance: AMOXICILLIN
     Indication: FOETAL EXPOSURE DURING PREGNANCY
     Dosage: MATERNAL DOSE: UNK
     Route: 064
  2. DUFASTON [Suspect]
     Active Substance: DYDROGESTERONE
     Indication: FOETAL EXPOSURE DURING PREGNANCY
     Dosage: MATERNAL DOSE: UNK
     Route: 064

REACTIONS (11)
  - Congenital toxoplasmosis [Recovering/Resolving]
  - Depressed level of consciousness [Recovering/Resolving]
  - Rhinitis [Recovering/Resolving]
  - Jaundice neonatal [Recovering/Resolving]
  - Chorioretinal degeneration congenital [Recovering/Resolving]
  - Dilatation ventricular [Recovering/Resolving]
  - Foetal exposure during pregnancy [Unknown]
  - Monocyte count decreased [Unknown]
  - Anaemia [Recovering/Resolving]
  - Monocytosis [Unknown]
  - Lymphocytosis [Unknown]
